FAERS Safety Report 6315369-0 (Version None)
Quarter: 2009Q3

REPORT INFORMATION
  Report Type: 
  Country: None (occurrence: None)
  Receive Date: 20090819
  Receipt Date: 20090714
  Transmission Date: 20100115
  Serious: Yes (Other)
  Sender: FDA-Public Use
  Company Number: PL-ROCHE-650179

PATIENT
  Age: 53 Year
  Sex: Male

DRUGS (13)
  1. DIAZEPAM [Suspect]
     Indication: DRUG USE FOR UNKNOWN INDICATION
     Dosage: DOSE: 5 MG AT BEDTIME
     Route: 065
     Dates: end: 20030901
  2. MADOPAR [Suspect]
     Indication: DRUG USE FOR UNKNOWN INDICATION
     Dosage: DOSE: 3 X 62.5 MG
     Route: 065
     Dates: end: 20030901
  3. MADOPAR HBS [Suspect]
     Indication: DRUG USE FOR UNKNOWN INDICATION
     Dosage: DOSE: 3 X 1 TABLET
     Route: 065
     Dates: end: 20030901
  4. AMANTADINE HCL [Suspect]
     Indication: DRUG USE FOR UNKNOWN INDICATION
     Route: 065
  5. AMANTADINE HCL [Suspect]
     Route: 065
     Dates: end: 20030901
  6. ALFUZOSIN HCL [Suspect]
     Indication: BENIGN PROSTATIC HYPERPLASIA
     Route: 065
  7. ALFUZOSIN HCL [Suspect]
     Route: 065
     Dates: end: 20030901
  8. ESTAZOLAM [Suspect]
     Route: 065
     Dates: end: 20030901
  9. MEDAZEPAM [Suspect]
     Route: 065
     Dates: end: 20030901
  10. PERGOLIDE [Suspect]
     Indication: DRUG USE FOR UNKNOWN INDICATION
     Route: 065
     Dates: end: 20030901
  11. MIANSERIN [Suspect]
     Route: 065
  12. MIANSERIN [Suspect]
     Dosage: DOSE: UPTO 150 MG DAILY
     Route: 065
     Dates: end: 20030101
  13. MIRTAZAPINE [Suspect]
     Indication: DRUG USE FOR UNKNOWN INDICATION
     Route: 065
     Dates: start: 20030101, end: 20030901

REACTIONS (8)
  - ANXIETY [None]
  - DECREASED APPETITE [None]
  - DELUSION [None]
  - DEPRESSION [None]
  - ILL-DEFINED DISORDER [None]
  - INITIAL INSOMNIA [None]
  - PSYCHOMOTOR HYPERACTIVITY [None]
  - TREMOR [None]
